FAERS Safety Report 7791629-1 (Version None)
Quarter: 2011Q4

REPORT INFORMATION
  Report Type: 
  Country: None (occurrence: None)
  Receive Date: 20111003
  Receipt Date: 20110927
  Transmission Date: 20120403
  Serious: Yes (Hospitalization, Other)
  Sender: FDA-Public Use
  Company Number: US-ABBOTT-10P-163-0666058-00

PATIENT
  Sex: Female
  Weight: 70.37 kg

DRUGS (12)
  1. HUMIRA [Suspect]
     Route: 058
     Dates: start: 20110816, end: 20110816
  2. HUMIRA [Suspect]
     Route: 058
     Dates: start: 20110830, end: 20110830
  3. HUMIRA [Suspect]
     Route: 058
     Dates: start: 20110913
  4. APRISO [Concomitant]
     Indication: CROHN'S DISEASE
  5. ALLEGRA [Concomitant]
     Indication: SEASONAL ALLERGY
  6. BIRTH CONTROL [Concomitant]
     Indication: PRODUCT USED FOR UNKNOWN INDICATION
  7. REMERON [Concomitant]
     Indication: ANXIETY
  8. VISTARIL [Concomitant]
     Indication: ANXIETY
  9. ENTOCORT EC [Concomitant]
     Indication: CROHN'S DISEASE
  10. HUMIRA [Suspect]
     Indication: CROHN'S DISEASE
     Route: 058
     Dates: start: 20090701, end: 20100101
  11. OTC ALLERGY MEDICATION [Concomitant]
     Indication: HYPERSENSITIVITY
  12. TYLENOL-500 [Concomitant]
     Indication: PRODUCT USED FOR UNKNOWN INDICATION

REACTIONS (12)
  - CROHN'S DISEASE [None]
  - INJECTION SITE URTICARIA [None]
  - INJECTION SITE PAIN [None]
  - GASTROINTESTINAL INFECTION [None]
  - MALNUTRITION [None]
  - ABDOMINAL PAIN [None]
  - FISTULA [None]
  - ABSCESS [None]
  - INJECTION SITE MASS [None]
  - GASTROINTESTINAL INFLAMMATION [None]
  - INJECTION SITE PRURITUS [None]
  - GASTROINTESTINAL OEDEMA [None]
